FAERS Safety Report 13629719 (Version 1)
Quarter: 2017Q2

REPORT INFORMATION
  Report Type: Spontaneous
  Country: US (occurrence: US)
  Receive Date: 20170531
  Receipt Date: 20170531
  Transmission Date: 20170830
  Serious: No
  Sender: FDA-Public Use
  Company Number: US-ASTELLAS-1237322

PATIENT
  Sex: Female

DRUGS (9)
  1. SIMVASTIN [Concomitant]
     Active Substance: SIMVASTATIN
  2. ADVAIR HFA [Concomitant]
     Active Substance: FLUTICASONE PROPIONATE\SALMETEROL XINAFOATE
  3. EFFEXOR XR [Concomitant]
     Active Substance: VENLAFAXINE HYDROCHLORIDE
  4. SPIRIVA [Concomitant]
     Active Substance: TIOTROPIUM BROMIDE MONOHYDRATE
  5. TARCEVA [Suspect]
     Active Substance: ERLOTINIB HYDROCHLORIDE
     Indication: LUNG NEOPLASM MALIGNANT
     Route: 048
     Dates: start: 20130321
  6. ALPRAZOLAM. [Concomitant]
     Active Substance: ALPRAZOLAM
  7. GABAPENTIN. [Concomitant]
     Active Substance: GABAPENTIN
  8. LEVOTHYROXINE SODIUM. [Concomitant]
     Active Substance: LEVOTHYROXINE SODIUM
  9. TARCEVA [Suspect]
     Active Substance: ERLOTINIB HYDROCHLORIDE
     Indication: LUNG NEOPLASM MALIGNANT
     Route: 048
     Dates: start: 20121228

REACTIONS (7)
  - Hyperhidrosis [Unknown]
  - Alopecia [Unknown]
  - Dry skin [Not Recovered/Not Resolved]
  - Affect lability [Unknown]
  - Dyspepsia [Not Recovered/Not Resolved]
  - Diarrhoea [Unknown]
  - Muscle spasms [Not Recovered/Not Resolved]
